FAERS Safety Report 4725596-1 (Version None)
Quarter: 2005Q3

REPORT INFORMATION
  Report Type: 
  Country: None (occurrence: None)
  Receive Date: 20050727
  Receipt Date: 20050720
  Transmission Date: 20060218
  Serious: Yes (Other)
  Sender: FDA-Public Use
  Company Number: US-BRISTOL-MYERS SQUIBB COMPANY-13045315

PATIENT
  Age: 65 Year
  Sex: Male
  Weight: 110 kg

DRUGS (5)
  1. ERBITUX [Suspect]
     Indication: COLON CANCER
     Route: 042
     Dates: start: 20050630, end: 20050630
  2. BENADRYL [Concomitant]
     Indication: PREMEDICATION
     Route: 040
     Dates: start: 20050630, end: 20050630
  3. DECADRON [Concomitant]
     Indication: PREMEDICATION
     Route: 040
     Dates: start: 20050630, end: 20050630
  4. KYTRIL [Concomitant]
     Indication: PREMEDICATION
     Route: 040
     Dates: start: 20050630, end: 20050630
  5. NEXIUM [Concomitant]

REACTIONS (4)
  - DYSPEPSIA [None]
  - ERYTHEMA [None]
  - INFUSION RELATED REACTION [None]
  - PARAESTHESIA [None]
